FAERS Safety Report 12959765 (Version 1)
Quarter: 2016Q4

REPORT INFORMATION
  Report Type: Spontaneous
  Country: AU (occurrence: AU)
  Receive Date: 20161121
  Receipt Date: 20161121
  Transmission Date: 20170207
  Serious: Yes (Other)
  Sender: FDA-Public Use
  Company Number: AU-009507513-1611AUS007815

PATIENT
  Age: 22 Year
  Sex: Female

DRUGS (1)
  1. ROCURONIUM BROMIDE. [Suspect]
     Active Substance: ROCURONIUM BROMIDE

REACTIONS (3)
  - Bronchospasm [Recovered/Resolved]
  - Hypoventilation [Recovered/Resolved]
  - Anaphylactic reaction [Recovered/Resolved]
